FAERS Safety Report 7858521-5 (Version None)
Quarter: 2011Q4

REPORT INFORMATION
  Report Type: 
  Country: None (occurrence: None)
  Receive Date: 20111027
  Receipt Date: 20111020
  Transmission Date: 20120403
  Serious: No
  Sender: FDA-Public Use
  Company Number: US-BAYER-2011-103564

PATIENT
  Age: 66 Year
  Sex: Female

DRUGS (8)
  1. NEXAVAR [Suspect]
     Indication: HEPATIC NEOPLASM MALIGNANT
     Dosage: 400 MG, QD
     Route: 048
  2. VITAMIN B COMPLEX CAP [Concomitant]
  3. VITAMIN D [Concomitant]
  4. SPIRONOLACTONE [Concomitant]
  5. PRILOSEC [Concomitant]
  6. NADOLOL [Concomitant]
  7. FUROSEMIDE [Concomitant]
  8. MULTI-VITAMIN [Concomitant]

REACTIONS (1)
  - FATIGUE [None]
